FAERS Safety Report 9216181 (Version 1)
Quarter: 2013Q2

REPORT INFORMATION
  Report Type: Spontaneous
  Country: ES (occurrence: None)
  Receive Date: 20130403
  Receipt Date: 20130403
  Transmission Date: 20140414
  Serious: Yes (Life-Threatening, Other)
  Sender: FDA-Public Use
  Company Number: DAV-AE-MTX-13-22

PATIENT
  Age: 45 Year
  Sex: Female

DRUGS (2)
  1. METHOTREXATE [Suspect]
     Indication: ARTHRALGIA
     Dosage: 10 MG/WEEK, SUBCUTANEOUS
     Route: 058
  2. INFLIXIMAB [Concomitant]

REACTIONS (1)
  - Pleurisy [None]
